FAERS Safety Report 5012713-1 (Version None)
Quarter: 2006Q2

REPORT INFORMATION
  Report Type: 
  Country: None (occurrence: None)
  Receive Date: 20060524
  Receipt Date: 20060515
  Transmission Date: 20061013
  Serious: Yes (Hospitalization, Other)
  Sender: FDA-Public Use
  Company Number: 2005135557

PATIENT
  Age: 32 Year
  Sex: Female
  Weight: 57 kg

DRUGS (6)
  1. SOMAVERT [Suspect]
     Indication: ACROMEGALY
     Dosage: 10 MG (10 MG DAILY) SUBCUTANEOUS
     Route: 058
     Dates: start: 20050330, end: 20050923
  2. DESMOPRESSIN [Concomitant]
  3. HYDROCORTISONE [Concomitant]
  4. ACETAMINOPHEN [Concomitant]
  5. IPERTEN (MANIDIPINE HYDROCHLORIDE) [Concomitant]
  6. SANDOSTATINE (OCTREOTIDE) [Concomitant]

REACTIONS (11)
  - ADENOMA BENIGN [None]
  - DIABETES INSIPIDUS [None]
  - DIZZINESS [None]
  - GASTROINTESTINAL DISORDER [None]
  - HEADACHE [None]
  - HYPERTENSION [None]
  - HYPOPITUITARISM [None]
  - INFLAMMATION [None]
  - MIGRAINE [None]
  - NEOPLASM PROGRESSION [None]
  - POST PROCEDURAL COMPLICATION [None]
